FAERS Safety Report 20823011 (Version 1)
Quarter: 2022Q2

REPORT INFORMATION
  Report Type: Other
  Country: EE (occurrence: EE)
  Receive Date: 20220512
  Receipt Date: 20220512
  Transmission Date: 20220721
  Serious: Yes (Death, Other)
  Sender: FDA-Public Use
  Company Number: EE-CELLTRION INC.-2022EE006124

PATIENT

DRUGS (1)
  1. RITUXIMAB [Suspect]
     Active Substance: RITUXIMAB
     Indication: Product used for unknown indication
     Route: 065

REACTIONS (1)
  - COVID-19 [Fatal]
